FAERS Safety Report 6956518-0 (Version None)
Quarter: 2010Q3

REPORT INFORMATION
  Report Type: 
  Country: None (occurrence: None)
  Receive Date: 20100830
  Receipt Date: 20100825
  Transmission Date: 20110219
  Serious: Yes (Hospitalization)
  Sender: FDA-Public Use
  Company Number: CH-BAYER-201037098GPV

PATIENT
  Age: 81 Year
  Sex: Male

DRUGS (6)
  1. ASPIRIN [Suspect]
     Indication: PRODUCT USED FOR UNKNOWN INDICATION
     Dosage: TOTAL DAILY DOSE: 100 MG
     Route: 048
     Dates: end: 20100417
  2. SERTRALIN [Suspect]
     Indication: PRODUCT USED FOR UNKNOWN INDICATION
     Dosage: TOTAL DAILY DOSE: 50 MG
     Route: 048
  3. CORDARONE [Concomitant]
     Route: 048
  4. COVERSUM N (PERINDOPRIL ARGININE) [Concomitant]
     Route: 048
  5. AGOPTON [Concomitant]
     Route: 048
  6. DISTRANEURIN [Concomitant]

REACTIONS (2)
  - FALL [None]
  - SUBDURAL HAEMORRHAGE [None]
